FAERS Safety Report 11740520 (Version 2)
Quarter: 2015Q4

REPORT INFORMATION
  Report Type: Spontaneous
  Country: US (occurrence: US)
  Receive Date: 20151110
  Receipt Date: 20151120
  Transmission Date: 20160304
  Serious: No
  Sender: FDA-Public Use
  Company Number: US-ELI_LILLY_AND_COMPANY-US201109007080

PATIENT
  Age: 76 Year
  Sex: Male

DRUGS (1)
  1. FORTEO [Suspect]
     Active Substance: TERIPARATIDE
     Indication: OSTEOPOROSIS
     Dosage: 20 UG, QD

REACTIONS (6)
  - Dysphonia [Unknown]
  - Feeling cold [Recovering/Resolving]
  - Abdominal discomfort [Recovering/Resolving]
  - Vomiting [Recovering/Resolving]
  - Malaise [Recovering/Resolving]
  - Nausea [Recovering/Resolving]

NARRATIVE: CASE EVENT DATE: 20110921
